FAERS Safety Report 8576944-6 (Version None)
Quarter: 2012Q3

REPORT INFORMATION
  Report Type: 
  Country: None (occurrence: None)
  Receive Date: 20120807
  Receipt Date: 20120725
  Transmission Date: 20120928
  Serious: Yes (Hospitalization, Other)
  Sender: FDA-Public Use
  Company Number: US-ROCHE-1089058

PATIENT
  Sex: Female

DRUGS (8)
  1. XANAX [Concomitant]
     Indication: ANXIETY
     Route: 048
  2. OMEPRAZOLE [Concomitant]
     Route: 048
  3. ZELBORAF [Suspect]
     Indication: MALIGNANT MELANOMA
     Route: 048
     Dates: start: 20120316
  4. DOCUSATE CALCIUM [Concomitant]
     Route: 048
  5. CHOLECALCIFEROL [Concomitant]
     Dosage: 2000 UNIT DAILY
     Route: 048
  6. CARAFATE [Concomitant]
     Dosage: 1 G/10 ML SOLUTION
     Route: 048
  7. IRON SULFATETHIAMIN COMPOUND TAB [Concomitant]
     Route: 048
  8. DUKES SOLUTION (BENADRYL, MAALOX, VISCOUS XYLOCAINE, NYSTATIN) [Concomitant]
     Dosage: 10 CC

REACTIONS (14)
  - OEDEMA PERIPHERAL [None]
  - NAUSEA [None]
  - BACK PAIN [None]
  - MELANOCYTIC NAEVUS [None]
  - ARTHRALGIA [None]
  - NEUTROPENIA [None]
  - ASTHENIA [None]
  - SQUAMOUS CELL CARCINOMA [None]
  - SWELLING [None]
  - KERATOACANTHOMA [None]
  - VOMITING [None]
  - OESOPHAGITIS [None]
  - DEHYDRATION [None]
  - RASH ERYTHEMATOUS [None]
